FAERS Safety Report 8428975-4 (Version None)
Quarter: 2012Q2

REPORT INFORMATION
  Report Type: 
  Country: None (occurrence: None)
  Receive Date: 20120612
  Receipt Date: 20120601
  Transmission Date: 20120825
  Serious: Yes (Hospitalization)
  Sender: FDA-Public Use
  Company Number: US-ELI_LILLY_AND_COMPANY-US201101006945

PATIENT
  Sex: Female

DRUGS (8)
  1. LOVENOX [Concomitant]
     Dosage: 1.5 MG/KG, UNKNOWN
     Route: 065
  2. EVISTA [Concomitant]
     Dosage: UNK, UNKNOWN
     Route: 065
  3. AMLODIPINE [Concomitant]
     Indication: HYPERTENSION
     Dosage: 10 MG, UNKNOWN
     Route: 048
     Dates: start: 19990101, end: 20110120
  4. DEXAMETHASONE [Concomitant]
  5. GEMCITABINE HYDROCHLORIDE [Suspect]
     Indication: PANCREATIC CARCINOMA METASTATIC
     Dosage: 1000 MG/M2, UNK
     Route: 042
     Dates: start: 20110118
  6. METOCLOPRAMIDE HYDROCHLORIDE [Concomitant]
  7. PLACEBO [Suspect]
     Indication: PANCREATIC CARCINOMA METASTATIC
     Dosage: UNK, UNKNOWN
     Route: 048
     Dates: start: 20110118
  8. HYDROCHLOROTHIAZIDE [Concomitant]
     Indication: HYPERTENSION
     Dosage: 12.5 MG, UNKNOWN
     Route: 048
     Dates: start: 19990101, end: 20110120

REACTIONS (1)
  - DEHYDRATION [None]
